FAERS Safety Report 7940588-7 (Version None)
Quarter: 2011Q4

REPORT INFORMATION
  Report Type: 
  Country: None (occurrence: None)
  Receive Date: 20111108
  Receipt Date: 20110727
  Transmission Date: 20120403
  Serious: Yes (Other)
  Sender: FDA-Public Use
  Company Number: PHHY2011US68069

PATIENT
  Age: 63 Year
  Sex: Female

DRUGS (5)
  1. ZOMETA [Suspect]
     Dosage: 04 MG, ONCE EVERY 03 WEEKS
  2. CHEMOTHERAPEUTICS,OTHER (CHEMOTHERAPEUTICS,OTHER) [Concomitant]
  3. STATINS (NO INGREDIENTS/SUBSTANCES) [Concomitant]
  4. HERCEPTIN [Concomitant]
  5. MELATONIN (MELATONIN) [Concomitant]

REACTIONS (2)
  - OSTEONECROSIS OF JAW [None]
  - JAW DISORDER [None]
